FAERS Safety Report 26127772 (Version 2)
Quarter: 2025Q4

REPORT INFORMATION
  Report Type: Spontaneous
  Country: EU (occurrence: EU)
  Receive Date: 20251206
  Receipt Date: 20251208
  Transmission Date: 20260118
  Serious: Yes (Other)
  Sender: NOVARTIS
  Company Number: None

PATIENT
  Age: 83 Year
  Sex: Male

DRUGS (2)
  1. CARBAMAZEPINE [Suspect]
     Active Substance: CARBAMAZEPINE
     Indication: Product used for unknown indication
     Dosage: 1300 MG, QD, 561A
     Route: 048
     Dates: start: 202506, end: 20250617
  2. CARBAMAZEPINE [Suspect]
     Active Substance: CARBAMAZEPINE
     Indication: Product used for unknown indication
     Dosage: 200 MG, 8H, 561A
     Route: 048
     Dates: start: 202506, end: 20250617

REACTIONS (3)
  - Dysarthria [Recovered/Resolved]
  - Dizziness [Recovered/Resolved]
  - Wrong dose [Recovered/Resolved]

NARRATIVE: CASE EVENT DATE: 20250601
